FAERS Safety Report 7522102-3 (Version None)
Quarter: 2011Q2

REPORT INFORMATION
  Report Type: 
  Country: None (occurrence: None)
  Receive Date: 20110603
  Receipt Date: 20110531
  Transmission Date: 20111010
  Serious: Yes (Death)
  Sender: FDA-Public Use
  Company Number: US-AMGEN-USASP2011021009

PATIENT
  Sex: Female
  Weight: 54.422 kg

DRUGS (10)
  1. NPLATE [Suspect]
     Indication: IDIOPATHIC THROMBOCYTOPENIC PURPURA
     Dosage: 110 A?G, QWK
     Route: 058
     Dates: start: 20110114, end: 20110120
  2. TYLENOL (CAPLET) [Concomitant]
  3. IVIGLOB-EX [Concomitant]
     Dosage: UNK
     Route: 042
     Dates: start: 20110103, end: 20110105
  4. RED BLOOD CELLS, CONCENTRATED [Concomitant]
  5. LASIX [Concomitant]
  6. ZOFRAN [Concomitant]
  7. CLARITIN                           /00917501/ [Concomitant]
  8. GAMMAR-P                           /00025201/ [Concomitant]
  9. ARANESP [Suspect]
     Indication: ANAEMIA
     Dosage: 300 A?G, Q2WK
     Route: 058
     Dates: start: 20101103, end: 20101117
  10. PLATELETS [Concomitant]

REACTIONS (1)
  - LEUKAEMIA RECURRENT [None]
